FAERS Safety Report 26151690 (Version 1)
Quarter: 2025Q4

REPORT INFORMATION
  Report Type: Spontaneous
  Country: US (occurrence: US)
  Receive Date: 20251212
  Receipt Date: 20251212
  Transmission Date: 20260118
  Serious: No
  Sender: BIOMARIN
  Company Number: US-SA-2025SA364839

PATIENT
  Age: 39 Year
  Sex: Male

DRUGS (1)
  1. LARONIDASE [Suspect]
     Active Substance: LARONIDASE
     Indication: Mucopolysaccharidosis I
     Dosage: 0.58 (UNIT NOT PROVIDED), QW

REACTIONS (2)
  - Cardiac valve disease [Not Recovered/Not Resolved]
  - Condition aggravated [Not Recovered/Not Resolved]
